FAERS Safety Report 4456968-0 (Version None)
Quarter: 2004Q3

REPORT INFORMATION
  Report Type: 
  Country: None (occurrence: None)
  Receive Date: 20040921
  Receipt Date: 20040906
  Transmission Date: 20050211
  Serious: Yes (Congenital Anomaly)
  Sender: FDA-Public Use
  Company Number: 2004GB02162

PATIENT
  Sex: Male

DRUGS (1)
  1. ZOLADEX [Suspect]

REACTIONS (4)
  - AUTISM [None]
  - CONGENITAL ANOMALY [None]
  - DRUG EXPOSURE DURING PREGNANCY [None]
  - HYDROPS FOETALIS [None]
